FAERS Safety Report 17282156 (Version 1)
Quarter: 2020Q1

REPORT INFORMATION
  Report Type: Spontaneous
  Country: US (occurrence: US)
  Receive Date: 20200117
  Receipt Date: 20200117
  Transmission Date: 20200409
  Serious: Yes (Hospitalization)
  Sender: FDA-Public Use
  Company Number: US-EMD SERONO-9140496

PATIENT
  Age: 61 Year
  Sex: Male
  Weight: 99 kg

DRUGS (1)
  1. METFORMIN [Suspect]
     Active Substance: METFORMIN HYDROCHLORIDE
     Indication: COLON CANCER
     Route: 048
     Dates: start: 20190703

REACTIONS (8)
  - Off label use [Unknown]
  - Asthenia [Unknown]
  - Fall [Unknown]
  - Dyspnoea exertional [Unknown]
  - Back pain [Unknown]
  - Gait disturbance [Unknown]
  - Loss of personal independence in daily activities [Unknown]
  - Dysuria [Unknown]

NARRATIVE: CASE EVENT DATE: 201907
